FAERS Safety Report 10501186 (Version 1)
Quarter: 2014Q4

REPORT INFORMATION
  Report Type: Spontaneous
  Country: US (occurrence: None)
  Receive Date: 20141006
  Receipt Date: 20141006
  Transmission Date: 20150528
  Serious: Yes (Death, Hospitalization)
  Sender: FDA-Public Use
  Company Number: None

PATIENT
  Age: 65 Year
  Sex: Male
  Weight: 79.8 kg

DRUGS (1)
  1. HEPARIN [Suspect]
     Active Substance: HEPARIN SODIUM
     Indication: CHRONIC KIDNEY DISEASE
     Dates: end: 20140725

REACTIONS (9)
  - Dialysis [None]
  - Confusional state [None]
  - Anaemia [None]
  - Catheter site haemorrhage [None]
  - Intra-abdominal haemorrhage [None]
  - Thrombocytopenia [None]
  - Respiratory arrest [None]
  - Fluid overload [None]
  - Respiratory distress [None]

NARRATIVE: CASE EVENT DATE: 20140725
